FAERS Safety Report 7277243-5 (Version None)
Quarter: 2011Q1

REPORT INFORMATION
  Report Type: 
  Country: None (occurrence: None)
  Receive Date: 20110202
  Receipt Date: 20110202
  Transmission Date: 20110831
  Serious: Yes (Other)
  Sender: FDA-Public Use
  Company Number: None

PATIENT
  Age: 3 Year
  Sex: Male
  Weight: 20.74 kg

DRUGS (1)
  1. ELAPRASE [Suspect]
     Indication: MUCOPOLYSACCHARIDOSIS II
     Dosage: 12 MG ONCE WEEKLY IV
     Route: 042

REACTIONS (7)
  - INFUSION SITE EXTRAVASATION [None]
  - PAIN [None]
  - INFUSION RELATED REACTION [None]
  - RASH MACULO-PAPULAR [None]
  - RASH GENERALISED [None]
  - RASH ERYTHEMATOUS [None]
  - SKIN DISCOLOURATION [None]
